FAERS Safety Report 10082069 (Version 2)
Quarter: 2014Q2

REPORT INFORMATION
  Report Type: Spontaneous
  Country: US (occurrence: None)
  Receive Date: 20140414
  Receipt Date: 20140425
  Transmission Date: 20141212
  Serious: Yes (Hospitalization)
  Sender: FDA-Public Use
  Company Number: UTC-046812

PATIENT
  Age: 68 Year
  Sex: Female

DRUGS (3)
  1. REMODULIN [Suspect]
     Indication: PULMONARY ARTERIAL HYPERTENSION
     Dosage: 106.56 UG/KG (0.074 UG/KG 1 IN 1 MIN)
     Route: 058
     Dates: start: 20120710
  2. ADCIRCA(TADALAFIL) [Concomitant]
  3. TRACLEER(BOSENTAN) [Concomitant]

REACTIONS (9)
  - Pneumonia [None]
  - Fluid retention [None]
  - Cardiac failure congestive [None]
  - Swelling [None]
  - Pain [None]
  - Nausea [None]
  - Vomiting [None]
  - Dyspnoea [None]
  - Fatigue [None]
